FAERS Safety Report 4976312-X (Version None)
Quarter: 2006Q2

REPORT INFORMATION
  Report Type: 
  Country: None (occurrence: None)
  Receive Date: 20060412
  Receipt Date: 20060404
  Transmission Date: 20061013
  Serious: Yes (Other)
  Sender: FDA-Public Use
  Company Number: 2006047270

PATIENT
  Age: 36 Year
  Sex: Female
  Weight: 53.0709 kg

DRUGS (2)
  1. NEURONTIN [Suspect]
     Indication: NEURALGIA
     Dosage: 300 MG (300 MG, 1 IN 1 D),
     Dates: start: 20051001
  2. SYNTHROID [Concomitant]

REACTIONS (6)
  - AFFECT LABILITY [None]
  - ANGER [None]
  - DIZZINESS [None]
  - EYE PAIN [None]
  - GAIT DISTURBANCE [None]
  - HEADACHE [None]
